FAERS Safety Report 5146243-3 (Version None)
Quarter: 2006Q4

REPORT INFORMATION
  Report Type: 
  Country: None (occurrence: None)
  Receive Date: 20061108
  Receipt Date: 20061017
  Transmission Date: 20070319
  Serious: Yes (Death)
  Sender: FDA-Public Use
  Company Number: 2006AP04884

PATIENT
  Age: 61 Year
  Sex: Male

DRUGS (5)
  1. IRESSA [Suspect]
     Indication: LUNG NEOPLASM MALIGNANT
     Route: 048
     Dates: start: 20061003
  2. VINORELBINE AND TARTARIC ACID [Concomitant]
     Dosage: 1 COURSE
     Dates: start: 20060920, end: 20060920
  3. GEMZAR [Concomitant]
     Dosage: 1 COURSE
     Dates: start: 20060920, end: 20060920
  4. INTERLEUKIN [Concomitant]
     Dosage: 1 COURSE
     Dates: start: 20060920, end: 20060920
  5. UNKNOWN DRUGS [Concomitant]
     Dates: start: 20060801

REACTIONS (1)
  - DEATH [None]
